FAERS Safety Report 23511997 (Version 1)
Quarter: 2024Q1

REPORT INFORMATION
  Report Type: Other
  Country: US (occurrence: None)
  Receive Date: 20240212
  Receipt Date: 20240212
  Transmission Date: 20240409
  Serious: Yes (Other)
  Sender: FDA-Public Use
  Company Number: US-ROCHE-3385671

PATIENT
  Age: 35 Year
  Sex: Female

DRUGS (9)
  1. ACTEMRA [Suspect]
     Active Substance: TOCILIZUMAB
     Indication: CREST syndrome
     Dosage: STRENGTH:162MG/ 0.9ML. INTO THE SKIN
     Route: 058
     Dates: start: 20230417
  2. ACTEMRA [Suspect]
     Active Substance: TOCILIZUMAB
  3. ALBUTEROL [Concomitant]
     Active Substance: ALBUTEROL
     Dosage: 90 MCG AUTO INHALER
  4. NORVASC [Concomitant]
     Active Substance: AMLODIPINE BESYLATE
     Route: 048
     Dates: start: 20221129
  5. TRACLEER [Concomitant]
     Active Substance: BOSENTAN
     Route: 048
     Dates: start: 20230621
  6. FOLVITE [Concomitant]
     Active Substance: FOLIC ACID
     Route: 048
  7. METHOTREXATE [Concomitant]
     Active Substance: METHOTREXATE
     Dosage: 2.5 MG, TAKE 8 TABLET
     Route: 048
  8. PROTONIX [Concomitant]
     Active Substance: PANTOPRAZOLE SODIUM
     Route: 048
  9. REVATIO [Concomitant]
     Active Substance: SILDENAFIL CITRATE
     Route: 048
     Dates: start: 20230110

REACTIONS (3)
  - Off label use [Unknown]
  - Fall [Unknown]
  - Pelvic fracture [Unknown]
